FAERS Safety Report 7617656-2 (Version None)
Quarter: 2011Q3

REPORT INFORMATION
  Report Type: 
  Country: None (occurrence: None)
  Receive Date: 20110718
  Receipt Date: 20110704
  Transmission Date: 20111222
  Serious: Yes (Hospitalization)
  Sender: FDA-Public Use
  Company Number: US-MYLANLABS-2011S1014142

PATIENT
  Age: 43 Year
  Sex: Female

DRUGS (4)
  1. ARIPIPRAZOLE [Concomitant]
     Indication: MAJOR DEPRESSION
     Dosage: 10 MG/DAY
     Route: 048
  2. BUPROPION HCL [Suspect]
     Indication: MAJOR DEPRESSION
     Dosage: 100MG TWICE DAILY
     Route: 048
  3. LEVOTHYROXINE SODIUM [Concomitant]
     Indication: HYPOTHYROIDISM
     Dosage: 50 MICROG/DAY
     Route: 048
  4. DULOXETIME HYDROCHLORIDE [Concomitant]
     Indication: MAJOR DEPRESSION
     Dosage: 120MG TWICE DAILY
     Route: 048

REACTIONS (1)
  - ACUTE GENERALISED EXANTHEMATOUS PUSTULOSIS [None]
